FAERS Safety Report 10128509 (Version 1)
Quarter: 2014Q2

REPORT INFORMATION
  Report Type: Spontaneous
  Country: US (occurrence: None)
  Receive Date: 20140424
  Receipt Date: 20140424
  Transmission Date: 20141212
  Serious: Yes (Other)
  Sender: FDA-Public Use
  Company Number: 2014US003123

PATIENT
  Age: 91 Year
  Sex: Female

DRUGS (1)
  1. HORIZANT [Suspect]
     Indication: RESTLESS LEGS SYNDROME
     Route: 048
     Dates: start: 2014

REACTIONS (4)
  - Immobile [None]
  - Asthenia [None]
  - Insomnia [None]
  - Fatigue [None]
